FAERS Safety Report 8244913-1 (Version None)
Quarter: 2012Q1

REPORT INFORMATION
  Report Type: 
  Country: None (occurrence: None)
  Receive Date: 20120329
  Receipt Date: 20110907
  Transmission Date: 20120608
  Serious: No
  Sender: FDA-Public Use
  Company Number: US-MYLANLABS-2011S1018710

PATIENT
  Age: 57 Year
  Sex: Male

DRUGS (4)
  1. FENTANYL-100 [Suspect]
     Indication: BACK PAIN
     Route: 062
     Dates: start: 20110201
  2. DIOVAN [Concomitant]
     Indication: BLOOD PRESSURE INCREASED
  3. TRAZODONE HCL [Concomitant]
     Indication: INSOMNIA
  4. NAPROXEN (ALEVE) [Concomitant]
     Indication: PAIN

REACTIONS (5)
  - DRUG WITHDRAWAL SYNDROME [None]
  - ASTHENIA [None]
  - PAIN [None]
  - BACK PAIN [None]
  - DRUG INEFFECTIVE [None]
